FAERS Safety Report 7068007-6 (Version None)
Quarter: 2010Q4

REPORT INFORMATION
  Report Type: 
  Country: None (occurrence: None)
  Receive Date: 20101028
  Receipt Date: 20101001
  Transmission Date: 20110411
  Serious: No
  Sender: FDA-Public Use
  Company Number: US-MYLANLABS-2010S1017994

PATIENT
  Age: 73 Year
  Sex: Male
  Weight: 77.11 kg

DRUGS (5)
  1. TAMSULOSIN HCL [Suspect]
     Indication: POLLAKIURIA
     Route: 048
     Dates: start: 20100501, end: 20100801
  2. TAMSULOSIN HCL [Suspect]
     Indication: BENIGN PROSTATIC HYPERPLASIA
     Route: 048
     Dates: start: 20100501, end: 20100801
  3. ASPIRIN [Concomitant]
  4. DYAZIDE [Concomitant]
     Indication: HYPERTENSION
     Dosage: 37.5MG/25MG
     Dates: start: 20020101
  5. KLOR-CON [Concomitant]
     Indication: HYPOKALAEMIA
     Dates: start: 20070101

REACTIONS (2)
  - DRUG EFFECT DECREASED [None]
  - POLLAKIURIA [None]
